FAERS Safety Report 10186710 (Version 2)
Quarter: 2014Q3

REPORT INFORMATION
  Report Type: Report from Study
  Country: BR (occurrence: BR)
  Receive Date: 20140521
  Receipt Date: 20140722
  Transmission Date: 20150326
  Serious: Yes (Death, Hospitalization, Other)
  Sender: FDA-Public Use
  Company Number: PHHY2014BR058673

PATIENT
  Sex: Male
  Weight: 52 kg

DRUGS (1)
  1. SANDOSTATIN LAR DEPOT [Suspect]
     Active Substance: OCTREOTIDE ACETATE
     Indication: NEUROENDOCRINE TUMOUR
     Dosage: UNK UKN, ONCE/MONTHLY

REACTIONS (14)
  - Hepatic cancer [Fatal]
  - Hepatic function abnormal [Fatal]
  - Portal vein occlusion [Unknown]
  - Malignant neoplasm progression [Fatal]
  - Obesity [Unknown]
  - Weight decreased [Unknown]
  - No therapeutic response [Unknown]
  - Syncope [Unknown]
  - Thrombosis [Fatal]
  - Fluid retention [Unknown]
  - Dyspepsia [Unknown]
  - Hepatic failure [Fatal]
  - Terminal state [Unknown]
  - Gastrooesophageal reflux disease [Unknown]
